FAERS Safety Report 4817711-6 (Version None)
Quarter: 2005Q4

REPORT INFORMATION
  Report Type: 
  Country: None (occurrence: None)
  Receive Date: 20051102
  Receipt Date: 20051021
  Transmission Date: 20060501
  Serious: Yes (Hospitalization)
  Sender: FDA-Public Use
  Company Number: AU-BRISTOL-MYERS SQUIBB COMPANY-13152368

PATIENT
  Age: 84 Year
  Sex: Male

DRUGS (3)
  1. AVAPRO [Suspect]
     Route: 048
  2. INDAPAMIDE [Concomitant]
     Route: 048
  3. PREDNISOLONE [Concomitant]
     Route: 048

REACTIONS (3)
  - DEHYDRATION [None]
  - HYPOCHLORAEMIA [None]
  - HYPONATRAEMIA [None]
